FAERS Safety Report 17616409 (Version 1)
Quarter: 2020Q2

REPORT INFORMATION
  Report Type: Spontaneous
  Country: GB (occurrence: GB)
  Receive Date: 20200402
  Receipt Date: 20200402
  Transmission Date: 20200713
  Serious: Yes (Hospitalization)
  Sender: FDA-Public Use
  Company Number: GB-ASTRAZENECA-2020SE41950

PATIENT
  Age: 62 Year
  Sex: Male

DRUGS (25)
  1. DUORESP SPIROMAX [Concomitant]
     Active Substance: BUDESONIDE\FORMOTEROL
     Dosage: 160MICROGRAMS/DOSE/4.5MICROGRAMS/DOSE, AS PER SMART
     Route: 065
  2. VENSIR XL PROLONGED RELEASE [Concomitant]
     Active Substance: VENLAFAXINE HYDROCHLORIDE
     Route: 065
  3. DAPAGLIFLOZIN. [Suspect]
     Active Substance: DAPAGLIFLOZIN
     Indication: TYPE 2 DIABETES MELLITUS
     Route: 048
  4. LIRAGLUTIDE [Concomitant]
     Active Substance: LIRAGLUTIDE
     Dosage: 6MG/ML AS DIRECTED
     Route: 065
     Dates: start: 20200305
  5. CARBOCISTEINE [Concomitant]
     Active Substance: CARBOCYSTEINE
     Route: 065
  6. DIHYDROCODEINE [Concomitant]
     Active Substance: DIHYDROCODEINE
     Dosage: 60MG QDS PRN
     Route: 065
  7. IPRATROPIUM BROMIDE. [Concomitant]
     Active Substance: IPRATROPIUM BROMIDE
     Dosage: 2 DF INTERMITTENT, 20MICROGRAMS/DOSE - 2 PUFFS QDS PRN
     Route: 065
  8. SIMVASTATIN. [Concomitant]
     Active Substance: SIMVASTATIN
     Route: 065
  9. QUETIAPINE. [Concomitant]
     Active Substance: QUETIAPINE
     Route: 065
  10. AMITRIPTYLINE [Concomitant]
     Active Substance: AMITRIPTYLINE
     Route: 065
  11. SODIUM ALGINATE [Concomitant]
     Active Substance: SODIUM ALGINATE
     Dosage: SODIUM ALGINATE 500MG/5ML / POTASSIUM BICARBONATE 100MG/5ML - 5-10ML TDS PRN
     Route: 065
  12. MACROGOL [Concomitant]
     Active Substance: POLYETHYLENE GLYCOLS
     Dosage: 1.0DF INTERMITTENT
     Route: 065
  13. PARACETAMOL [Concomitant]
     Active Substance: ACETAMINOPHEN
     Dosage: 500-1000MG 6 HOURLY PRN, INTERMITTENT
     Route: 065
  14. SALBUTAMOL [Concomitant]
     Active Substance: ALBUTEROL
     Dosage: 2 DF INTERMITTENT, 2 PUFFS QDS PRN
     Route: 065
  15. HYOSCINE BUTYLBROMIDE [Concomitant]
     Active Substance: BUTYLSCOPOLAMINE BROMIDE
     Route: 065
  16. POTASSIUM HYDROGEN CARBONATE [Concomitant]
     Dosage: SODIUM ALGINATE 500MG/5ML / POTASSIUM BICARBONATE 100MG/5ML - 5-10ML TDS PRN
     Route: 065
  17. AMITRIPTYLINE [Concomitant]
     Active Substance: AMITRIPTYLINE
     Route: 065
  18. DIAZEPAM. [Concomitant]
     Active Substance: DIAZEPAM
     Route: 065
  19. VENSIR XL PROLONGED RELEASE [Concomitant]
     Active Substance: VENLAFAXINE HYDROCHLORIDE
     Route: 065
  20. ENALAPRIL [Concomitant]
     Active Substance: ENALAPRIL
     Route: 065
  21. ESOMEPRAZOLE. [Concomitant]
     Active Substance: ESOMEPRAZOLE MAGNESIUM
     Route: 065
  22. ORAMORPH [Concomitant]
     Active Substance: MORPHINE SULFATE
     Dosage: 10MG/5ML, 15 ML DAILY
     Route: 065
  23. FULTIUM-D3 [Concomitant]
     Active Substance: CHOLECALCIFEROL
     Route: 065
  24. METFORMIN [Concomitant]
     Active Substance: METFORMIN HYDROCHLORIDE
     Route: 065
  25. TRAMADOL. [Concomitant]
     Active Substance: TRAMADOL
     Dosage: 50-100MG 4 HOURLY PRN, INTERMITTENT
     Route: 065

REACTIONS (1)
  - Euglycaemic diabetic ketoacidosis [Recovering/Resolving]
